FAERS Safety Report 4883134-7 (Version None)
Quarter: 2006Q1

REPORT INFORMATION
  Report Type: 
  Country: None (occurrence: None)
  Receive Date: 20060117
  Receipt Date: 20060117
  Transmission Date: 20060701
  Serious: Yes (Hospitalization)
  Sender: FDA-Public Use
  Company Number: None

PATIENT
  Sex: Female
  Weight: 64.7 kg

DRUGS (2)
  1. WARFARIN [Suspect]
     Indication: AORTIC VALVE REPLACEMENT
     Dosage: 2.5 MG  + 5MG   2.5MG SUTH ^5MG ROW  PO
     Route: 048
  2. NAPROXEN [Suspect]
     Indication: SPINAL COLUMN STENOSIS
     Dosage: 500MG   DAILY  PO
     Route: 048

REACTIONS (3)
  - DIARRHOEA [None]
  - FAECES DISCOLOURED [None]
  - VOMITING [None]
